FAERS Safety Report 17118126 (Version 1)
Quarter: 2019Q4

REPORT INFORMATION
  Report Type: Spontaneous
  Country: CA (occurrence: CA)
  Receive Date: 20191205
  Receipt Date: 20191205
  Transmission Date: 20200122
  Serious: Yes (Life-Threatening)
  Sender: FDA-Public Use
  Company Number: CA-NOVOPROD-699753

PATIENT
  Age: 44 Year
  Sex: Male
  Weight: 133 kg

DRUGS (15)
  1. COVERSYL [PERINDOPRIL ARGININE] [Concomitant]
     Active Substance: PERINDOPRIL ARGININE
  2. LYRICA [Concomitant]
     Active Substance: PREGABALIN
  3. AVENTYL [Concomitant]
     Active Substance: NORTRIPTYLINE HYDROCHLORIDE
  4. CRESTOR [Concomitant]
     Active Substance: ROSUVASTATIN CALCIUM
  5. ZOLOFT [Concomitant]
     Active Substance: SERTRALINE HYDROCHLORIDE
  6. PROMETRIUM [Concomitant]
     Active Substance: PROGESTERONE
  7. TRESIBA [Concomitant]
     Active Substance: INSULIN DEGLUDEC
     Route: 058
  8. ASA [Concomitant]
     Active Substance: ASPIRIN
  9. PROFERRIN [Concomitant]
     Active Substance: IRON
  10. WELLBUTRIN [Concomitant]
     Active Substance: BUPROPION HYDROCHLORIDE
  11. OZEMPIC [Suspect]
     Active Substance: SEMAGLUTIDE
     Indication: TYPE 2 DIABETES MELLITUS
     Dosage: UNK, QW
     Route: 058
  12. ATIVAN [Concomitant]
     Active Substance: LORAZEPAM
     Route: 060
  13. REACTINE [CETIRIZINE HYDROCHLORIDE;PSEUDOEPHEDRINE HYDROCHLORIDE] [Concomitant]
     Active Substance: CETIRIZINE HYDROCHLORIDE\PSEUDOEPHEDRINE HYDROCHLORIDE
  14. SYMBICORT [Concomitant]
     Active Substance: BUDESONIDE\FORMOTEROL FUMARATE DIHYDRATE
  15. VENTOLIN HFA [Concomitant]
     Active Substance: ALBUTEROL SULFATE

REACTIONS (7)
  - Anger [Recovered/Resolved]
  - Suicidal ideation [Recovered/Resolved]
  - Mental status changes [Recovered/Resolved]
  - Product administration interrupted [Unknown]
  - Mood altered [Recovered/Resolved]
  - Nausea [Recovered/Resolved]
  - Dehydration [Recovered/Resolved]
